FAERS Safety Report 12154459 (Version 5)
Quarter: 2016Q2

REPORT INFORMATION
  Report Type: Spontaneous
  Country: US (occurrence: US)
  Receive Date: 20160307
  Receipt Date: 20160510
  Transmission Date: 20160815
  Serious: Yes (Other)
  Sender: FDA-Public Use
  Company Number: US-PFIZER INC-2016139789

PATIENT
  Age: 60 Year
  Sex: Male
  Weight: 79.37 kg

DRUGS (3)
  1. LYRICA [Suspect]
     Active Substance: PREGABALIN
     Dosage: 150 MG, 3X/DAY
     Dates: start: 2005
  2. TRAMADOL. [Concomitant]
     Active Substance: TRAMADOL
     Dosage: UNK
     Dates: start: 201403
  3. LYRICA [Suspect]
     Active Substance: PREGABALIN
     Indication: FIBROMYALGIA
     Dosage: 200 MG, 3X/DAY
     Route: 048
     Dates: start: 2006

REACTIONS (14)
  - Prescribed overdose [Recovered/Resolved]
  - Withdrawal syndrome [Recovered/Resolved]
  - Anxiety [Not Recovered/Not Resolved]
  - Condition aggravated [Recovered/Resolved]
  - Intentional product misuse [Recovered/Resolved]
  - Swollen tongue [Recovered/Resolved]
  - Eye swelling [Recovered/Resolved]
  - Ocular discomfort [Recovered/Resolved]
  - Stress [Recovered/Resolved]
  - Exophthalmos [Recovered/Resolved]
  - Dizziness [Recovered/Resolved]
  - Aggression [Recovered/Resolved]
  - Weight decreased [Recovered/Resolved]
  - Drug intolerance [Recovered/Resolved]
